FAERS Safety Report 9477785 (Version 2)
Quarter: 2013Q3

REPORT INFORMATION
  Report Type: Report from Study
  Country: US (occurrence: US)
  Receive Date: 20130827
  Receipt Date: 20130928
  Transmission Date: 20140515
  Serious: Yes (Other)
  Sender: FDA-Public Use
  Company Number: US-ROCHE-1262151

PATIENT
  Sex: Male

DRUGS (2)
  1. LUCENTIS [Suspect]
     Indication: DIABETIC RETINOPATHY
     Route: 065
  2. GLUCOPHAGE XR [Concomitant]
     Route: 065

REACTIONS (8)
  - Vitreous haemorrhage [Not Recovered/Not Resolved]
  - Macular oedema [Unknown]
  - Pupillary light reflex tests abnormal [Unknown]
  - Retinal neovascularisation [Unknown]
  - Diabetic retinopathy [Unknown]
  - Diabetic retinal oedema [Unknown]
  - Vision blurred [Unknown]
  - Vitreous floaters [Unknown]
